FAERS Safety Report 7107155-9 (Version None)
Quarter: 2010Q4

REPORT INFORMATION
  Report Type: 
  Country: None (occurrence: None)
  Receive Date: 20101116
  Receipt Date: 20101021
  Transmission Date: 20110411
  Serious: Yes (Other)
  Sender: FDA-Public Use
  Company Number: IT-GILEAD-2010-0032936

PATIENT
  Age: 44 Year
  Sex: Female

DRUGS (5)
  1. ATRIPLA [Suspect]
     Indication: HIV INFECTION
     Route: 048
     Dates: start: 20090401, end: 20090701
  2. TRUVADA [Suspect]
     Dates: start: 20070101, end: 20090401
  3. SUSTIVA [Suspect]
     Dates: start: 20070101, end: 20090401
  4. KALETRA [Suspect]
     Dates: start: 20090701, end: 20090101
  5. COMBIVIR [Suspect]
     Dates: start: 20090701, end: 20090101

REACTIONS (3)
  - CAESAREAN SECTION [None]
  - NORMAL NEWBORN [None]
  - PREGNANCY [None]
